FAERS Safety Report 4765813-5 (Version None)
Quarter: 2005Q3

REPORT INFORMATION
  Report Type: 
  Country: None (occurrence: None)
  Receive Date: 20050912
  Receipt Date: 20050411
  Transmission Date: 20060218
  Serious: Yes (Life-Threatening, Hospitalization)
  Sender: FDA-Public Use
  Company Number: PHBS2005JP05171

PATIENT
  Age: 75 Year
  Sex: Male
  Weight: 53 kg

DRUGS (5)
  1. PICIBANIL [Suspect]
     Indication: PAIN
     Dosage: 5 DF/DAY
     Route: 042
     Dates: start: 20040903, end: 20040903
  2. PICIBANIL [Suspect]
     Dosage: 5 DF/DAY
     Route: 042
     Dates: start: 20040905, end: 20040905
  3. SELBEX [Concomitant]
     Indication: PROPHYLAXIS AGAINST GASTROINTESTINAL ULCER
     Dosage: 3 DF/DAY
     Route: 048
     Dates: start: 20040827, end: 20041013
  4. LOXOPROFEN [Suspect]
     Indication: PAIN
     Dosage: 60 MG, TID
     Route: 048
     Dates: start: 20040827, end: 20041013
  5. VOLTAREN [Suspect]
     Indication: PAIN
     Dosage: 50 MG/DAY
     Route: 054
     Dates: start: 20040819, end: 20041009

REACTIONS (4)
  - CHEST X-RAY ABNORMAL [None]
  - COUGH [None]
  - DYSPNOEA EXERTIONAL [None]
  - INTERSTITIAL LUNG DISEASE [None]
